FAERS Safety Report 6128158-7 (Version None)
Quarter: 2009Q1

REPORT INFORMATION
  Report Type: 
  Country: None (occurrence: None)
  Receive Date: 20090323
  Receipt Date: 20090310
  Transmission Date: 20090719
  Serious: Yes (Hospitalization)
  Sender: FDA-Public Use
  Company Number: US-ROCHE-615763

PATIENT
  Sex: Female
  Weight: 82.6 kg

DRUGS (7)
  1. CAPECITABINE [Suspect]
     Dosage: 2500 MG AM AND 2000 MG PM. 02 WEEKS ON
     Route: 048
     Dates: start: 20090210, end: 20090214
  2. ATENOLOL [Concomitant]
     Indication: HYPERTENSION
     Route: 048
  3. LEVOTHYROXINE [Concomitant]
     Indication: HYPOTHYROIDISM
     Route: 048
  4. TRAZODONE HCL [Concomitant]
     Dosage: DRUG: TRAZADONE
     Route: 048
  5. ZOLOFT [Concomitant]
     Indication: DEPRESSION
     Route: 048
  6. PRILOSEC [Concomitant]
     Indication: ILL-DEFINED DISORDER
     Route: 048
  7. ASPIRIN [Concomitant]
     Indication: PROPHYLAXIS
     Dosage: DRUG TAKEN AS REQUIRED, DAILY

REACTIONS (2)
  - CHEST PAIN [None]
  - PULMONARY EMBOLISM [None]
